FAERS Safety Report 10673867 (Version 1)
Quarter: 2014Q4

REPORT INFORMATION
  Report Type: Spontaneous
  Country: US (occurrence: None)
  Receive Date: 20141223
  Receipt Date: 20141223
  Transmission Date: 20150529
  Serious: No
  Sender: FDA-Public Use
  Company Number: None

PATIENT
  Age: 60 Year
  Sex: Female
  Weight: 49.44 kg

DRUGS (6)
  1. PILOCORPINE [Concomitant]
  2. AZITHROMYCIN [Suspect]
     Active Substance: AZITHROMYCIN ANHYDROUS
     Indication: TONGUE DISORDER
     Dosage: 2 PILLS THEN 1 EACH DAY AFTERWARDS.
     Route: 048
     Dates: start: 20141204, end: 20141205
  3. CLOTRIMAZOLE. [Suspect]
     Active Substance: CLOTRIMAZOLE
  4. CENTRUM MULTIVITAMIN ORAL SUPPLEMENTS [Concomitant]
  5. TIMOLOL [Concomitant]
     Active Substance: TIMOLOL
  6. DELSYM [Suspect]
     Active Substance: DEXTROMETHORPHAN
     Dates: start: 20141204, end: 20141205

REACTIONS (4)
  - Feeling abnormal [None]
  - Hypoaesthesia [None]
  - Chills [None]
  - Vomiting [None]

NARRATIVE: CASE EVENT DATE: 20141204
